FAERS Safety Report 13915934 (Version 1)
Quarter: 2017Q3

REPORT INFORMATION
  Report Type: Spontaneous
  Country: JP (occurrence: JP)
  Receive Date: 20170829
  Receipt Date: 20170829
  Transmission Date: 20171127
  Serious: Yes (Other)
  Sender: FDA-Public Use
  Company Number: JP-TEVA-801593ACC

PATIENT
  Age: 4 Decade

DRUGS (4)
  1. BENDAMUSTINE HYDROCHLORIDE. [Suspect]
     Active Substance: BENDAMUSTINE HYDROCHLORIDE
     Dosage: 90 MG/M2 DAILY; (2ND CYCLE)
     Route: 042
     Dates: start: 20170803, end: 20170804
  2. RITUXIMAB. [Suspect]
     Active Substance: RITUXIMAB
     Dosage: (2ND CYCLE)
     Route: 041
     Dates: start: 20170803
  3. RITUXIMAB. [Suspect]
     Active Substance: RITUXIMAB
     Indication: B-CELL LYMPHOMA
     Dosage: (1ST CYCLE)
     Route: 041
     Dates: start: 20170707
  4. BENDAMUSTINE HYDROCHLORIDE. [Suspect]
     Active Substance: BENDAMUSTINE HYDROCHLORIDE
     Indication: B-CELL LYMPHOMA
     Dosage: 90 MG/M2 DAILY; (1ST CYCLE)
     Route: 042
     Dates: start: 20170707, end: 20170708

REACTIONS (2)
  - Hepatic function abnormal [Unknown]
  - Prescribed underdose [Unknown]

NARRATIVE: CASE EVENT DATE: 20170707
